FAERS Safety Report 5472577-9 (Version None)
Quarter: 2007Q4

REPORT INFORMATION
  Report Type: 
  Country: None (occurrence: None)
  Receive Date: 20071001
  Receipt Date: 20070312
  Transmission Date: 20080405
  Serious: No
  Sender: FDA-Public Use
  Company Number: US-ASTRAZENECA-2005UW06210

PATIENT
  Age: 52 Year
  Sex: Female
  Weight: 61.7 kg

DRUGS (3)
  1. ARIMIDEX [Suspect]
     Indication: BREAST CANCER
     Route: 048
     Dates: start: 20030101
  2. SYNTHROID [Concomitant]
  3. FOSAMAX [Concomitant]

REACTIONS (9)
  - BLOOD CHOLESTEROL INCREASED [None]
  - BONE DENSITY DECREASED [None]
  - BONE PAIN [None]
  - CARPAL TUNNEL SYNDROME [None]
  - DEPRESSION [None]
  - OEDEMA PERIPHERAL [None]
  - PARAESTHESIA [None]
  - TENDONITIS [None]
  - WEIGHT INCREASED [None]
